FAERS Safety Report 9201377 (Version 1)
Quarter: 2013Q2

REPORT INFORMATION
  Report Type: Spontaneous
  Country: US (occurrence: US)
  Receive Date: 20130401
  Receipt Date: 20130401
  Transmission Date: 20140414
  Serious: Yes (Other)
  Sender: FDA-Public Use
  Company Number: US-BAYER-2013-039046

PATIENT
  Age: 27 Year
  Sex: Male

DRUGS (1)
  1. GADAVIST [Suspect]
     Indication: NUCLEAR MAGNETIC RESONANCE IMAGING ABDOMINAL
     Dosage: 7 ML, ONCE
     Route: 042
     Dates: start: 20130326, end: 20130326

REACTIONS (9)
  - Dyspnoea [None]
  - Dysphagia [None]
  - Burning sensation [None]
  - Unevaluable event [None]
  - Headache [None]
  - Swelling face [None]
  - Oedema mouth [None]
  - Tongue disorder [None]
  - Speech disorder [None]
